FAERS Safety Report 4313581-3 (Version None)
Quarter: 2004Q1

REPORT INFORMATION
  Report Type: 
  Country: None (occurrence: None)
  Receive Date: 20040305
  Receipt Date: 20040225
  Transmission Date: 20041129
  Serious: Yes (Other)
  Sender: FDA-Public Use
  Company Number: US-JNJFOC-20031000948

PATIENT
  Age: 78 Year
  Sex: Female
  Weight: 58.0604 kg

DRUGS (5)
  1. LEVAQUIN [Suspect]
     Indication: STREPTOCOCCAL INFECTION
     Dosage: 250 MG, 1 IN 1 DAY
     Dates: start: 20030926, end: 20031002
  2. CLONIDINE [Concomitant]
  3. PRINIVIL [Concomitant]
  4. XANAX [Concomitant]
  5. WATERPILL () DIURETICS [Concomitant]

REACTIONS (6)
  - CAROTID ARTERY ANEURYSM [None]
  - EXTRAOCULAR MUSCLE PARESIS [None]
  - HEADACHE [None]
  - INFLUENZA [None]
  - PHOTOPHOBIA [None]
  - VISION BLURRED [None]
